FAERS Safety Report 11701755 (Version 6)
Quarter: 2016Q1

REPORT INFORMATION
  Report Type: Spontaneous
  Country: US (occurrence: US)
  Receive Date: 20151105
  Receipt Date: 20160219
  Transmission Date: 20160525
  Serious: Yes (Other)
  Sender: FDA-Public Use
  Company Number: US-009507513-1511USA001159

PATIENT
  Age: 28 Year
  Sex: Female
  Weight: 102.4 kg

DRUGS (1)
  1. NEXPLANON [Suspect]
     Active Substance: ETONOGESTREL
     Indication: CONTRACEPTION
     Dosage: UNK, LEFT ARM
     Route: 059
     Dates: start: 20150413

REACTIONS (5)
  - Weight increased [Unknown]
  - Complication associated with device [Unknown]
  - Device deployment issue [Unknown]
  - Device difficult to use [Unknown]
  - Limb discomfort [Unknown]

NARRATIVE: CASE EVENT DATE: 2015
